FAERS Safety Report 24179278 (Version 1)
Quarter: 2024Q3

REPORT INFORMATION
  Report Type: Report from Study
  Country: CO (occurrence: None)
  Receive Date: 20240806
  Receipt Date: 20240806
  Transmission Date: 20241016
  Serious: Yes (Hospitalization, Other)
  Sender: ASTRAZENECA
  Company Number: 2022A044623

PATIENT
  Age: 18722 Day
  Sex: Female
  Weight: 85 kg

DRUGS (2)
  1. FASENRA [Suspect]
     Active Substance: BENRALIZUMAB
     Indication: Asthma
     Route: 058
     Dates: start: 20191211
  2. SYMBICORT [Suspect]
     Active Substance: BUDESONIDE\FORMOTEROL FUMARATE DIHYDRATE
     Indication: Asthma
     Dosage: 164.5 UG, EVERY 12 HOURS
     Route: 055
     Dates: start: 20090101

REACTIONS (1)
  - Cellulite [Recovering/Resolving]

NARRATIVE: CASE EVENT DATE: 20220120
